FAERS Safety Report 22189750 (Version 4)
Quarter: 2023Q2

REPORT INFORMATION
  Report Type: Report from Study
  Country: US (occurrence: US)
  Receive Date: 20230410
  Receipt Date: 20230619
  Transmission Date: 20230722
  Serious: No
  Sender: FDA-Public Use
  Company Number: US-002147023-NVSC2023US079697

PATIENT
  Age: 60 Year
  Sex: Female

DRUGS (1)
  1. KESIMPTA [Suspect]
     Active Substance: OFATUMUMAB
     Indication: Product used for unknown indication
     Dosage: UNK
     Route: 065
     Dates: start: 20230401

REACTIONS (10)
  - Mobility decreased [Unknown]
  - Muscle spasms [Unknown]
  - Hot flush [Unknown]
  - Feeling cold [Unknown]
  - Tremor [Unknown]
  - Arthralgia [Unknown]
  - Blood pressure increased [Unknown]
  - Back pain [Unknown]
  - Chills [Unknown]
  - Myalgia [Unknown]

NARRATIVE: CASE EVENT DATE: 20230401
